FAERS Safety Report 14138678 (Version 1)
Quarter: 2017Q4

REPORT INFORMATION
  Report Type: Spontaneous
  Country: IL (occurrence: IL)
  Receive Date: 20171027
  Receipt Date: 20171027
  Transmission Date: 20180321
  Serious: Yes (Life-Threatening, Other)
  Sender: FDA-Public Use
  Company Number: IL-PFIZER INC-2017460140

PATIENT
  Age: 70 Year
  Sex: Male

DRUGS (4)
  1. MICROPIRIN [Concomitant]
     Active Substance: ASPIRIN
     Dosage: UNK
     Dates: start: 20170420
  2. VALSARTAN. [Concomitant]
     Active Substance: VALSARTAN
  3. TOLTERODINE TARTRATE. [Suspect]
     Active Substance: TOLTERODINE TARTRATE
     Dosage: UNK
     Dates: start: 20170420
  4. CARDILOC [Concomitant]
     Active Substance: BISOPROLOL FUMARATE

REACTIONS (5)
  - Bilirubin conjugated increased [Not Recovered/Not Resolved]
  - Hepatic enzyme increased [Not Recovered/Not Resolved]
  - Jaundice [Not Recovered/Not Resolved]
  - Blood bilirubin unconjugated increased [Not Recovered/Not Resolved]
  - Liver injury [Unknown]
